FAERS Safety Report 12610984 (Version 3)
Quarter: 2017Q2

REPORT INFORMATION
  Report Type: Spontaneous
  Country: US (occurrence: US)
  Receive Date: 20160801
  Receipt Date: 20170425
  Transmission Date: 20170830
  Serious: No
  Sender: FDA-Public Use
  Company Number: US-PFIZER INC-2016365704

PATIENT
  Sex: Female

DRUGS (1)
  1. LYRICA [Suspect]
     Active Substance: PREGABALIN
     Indication: NEURALGIA
     Dosage: 100 MG, TWICE DAILY
     Dates: start: 2013

REACTIONS (5)
  - Vomiting [Unknown]
  - Bedridden [Recovered/Resolved]
  - Diarrhoea [Unknown]
  - Expired product administered [Unknown]
  - Pain [Unknown]

NARRATIVE: CASE EVENT DATE: 201611
